FAERS Safety Report 14036508 (Version 1)
Quarter: 2017Q4

REPORT INFORMATION
  Report Type: Spontaneous
  Country: US (occurrence: US)
  Receive Date: 20171003
  Receipt Date: 20171003
  Transmission Date: 20180321
  Serious: No
  Sender: FDA-Public Use
  Company Number: US-ROCHE-1997207

PATIENT
  Age: 34 Year
  Sex: Female
  Weight: 76.9 kg

DRUGS (1)
  1. OCREVUS [Suspect]
     Active Substance: OCRELIZUMAB
     Indication: PRODUCT USED FOR UNKNOWN INDICATION
     Route: 042
     Dates: start: 20170918

REACTIONS (2)
  - Swelling [Recovered/Resolved]
  - Pharyngeal erythema [Recovered/Resolved]
